FAERS Safety Report 12642492 (Version 1)
Quarter: 2016Q3

REPORT INFORMATION
  Report Type: Spontaneous
  Country: FR (occurrence: FR)
  Receive Date: 20160810
  Receipt Date: 20160810
  Transmission Date: 20161109
  Serious: Yes (Hospitalization)
  Sender: FDA-Public Use
  Company Number: FR-ASTRAZENECA-2016SE84199

PATIENT
  Age: 28686 Day
  Sex: Male
  Weight: 56 kg

DRUGS (4)
  1. TIORFAN [Concomitant]
     Active Substance: RACECADOTRIL
  2. LAMISIL [Concomitant]
     Active Substance: TERBINAFINE HYDROCHLORIDE
     Dates: end: 20160720
  3. INSULINOTHERAPY [Concomitant]
     Indication: TYPE 2 DIABETES MELLITUS
  4. BYDUREON [Suspect]
     Active Substance: EXENATIDE
     Indication: TYPE 2 DIABETES MELLITUS
     Route: 058
     Dates: start: 201606, end: 20160720

REACTIONS (4)
  - Hyponatraemia [Unknown]
  - Diarrhoea [Recovered/Resolved]
  - Hypokalaemia [Recovering/Resolving]
  - Blood creatine phosphokinase increased [Unknown]

NARRATIVE: CASE EVENT DATE: 20160716
